FAERS Safety Report 20944808 (Version 1)
Quarter: 2022Q2

REPORT INFORMATION
  Report Type: Spontaneous
  Country: FR (occurrence: FR)
  Receive Date: 20220610
  Receipt Date: 20220610
  Transmission Date: 20220721
  Serious: Yes (Hospitalization)
  Sender: FDA-Public Use
  Company Number: None

PATIENT
  Age: 60 Year
  Sex: Male
  Weight: 88 kg

DRUGS (13)
  1. CARBOPLATIN [Suspect]
     Active Substance: CARBOPLATIN
     Indication: Lung adenocarcinoma
     Dosage: CARBOPLATIN ACCORD HEALTCARE 5.00 AUC (MG) (COCKROFT) THAT IS 600 MG, STRENGTH: 10 MG/ML
     Route: 041
     Dates: start: 20220131, end: 20220221
  2. PEMBROLIZUMAB [Suspect]
     Active Substance: PEMBROLIZUMAB
     Indication: Lung adenocarcinoma
     Dosage: KEYTRUDA(PEMBROLIZUMAB) 200 MG ON D1 EVERY 21 DAYS, STRENGTH: 25 MG/ML
     Route: 041
     Dates: start: 20211220, end: 20220221
  3. ALIMTA [Suspect]
     Active Substance: PEMETREXED DISODIUM
     Indication: Lung adenocarcinoma
     Dosage: 500 MG/M2 THAT IS 1000 MG IN TOTAL ON D1EVERY 21 DAYS
     Route: 041
     Dates: start: 20211220, end: 20220221
  4. METHYLPREDNISOLONE [Suspect]
     Active Substance: METHYLPREDNISOLONE
     Indication: Lung adenocarcinoma
     Dosage: METHYLPREDNISOLONE INJECTION MYLAN 60 MG ON D1 EVERY 21 DAY
     Route: 041
     Dates: start: 20211220, end: 20220221
  5. DULOXETINE HYDROCHLORIDE [Concomitant]
     Active Substance: DULOXETINE HYDROCHLORIDE
     Indication: Mixed anxiety and depressive disorder
     Dosage: 60 MG 1-0-1
     Route: 048
  6. FINASTERIDE [Concomitant]
     Active Substance: FINASTERIDE
     Indication: Benign prostatic hyperplasia
     Dosage: 5 MG-0-0
     Route: 048
  7. METHADONE HYDROCHLORIDE [Concomitant]
     Active Substance: METHADONE HYDROCHLORIDE
     Indication: Drug dependence
     Dosage: 8 MG 1-0-0
     Route: 048
  8. OXAZEPAM [Concomitant]
     Active Substance: OXAZEPAM
     Indication: Mixed anxiety and depressive disorder
     Dosage: 100 MG-0-50 MG
     Route: 048
  9. TRAMADOL HYDROCHLORIDE [Concomitant]
     Active Substance: TRAMADOL HYDROCHLORIDE
     Indication: Neuralgia
     Dosage: 50 MG AS REQUIRED
     Route: 048
  10. ALFUZOSIN [Concomitant]
     Active Substance: ALFUZOSIN
     Indication: Benign prostatic hyperplasia
     Dosage: ALFUZOSIN LP 10 MG-0-0
     Route: 048
  11. GABAPENTIN [Concomitant]
     Active Substance: GABAPENTIN
     Indication: Neuralgia
     Dosage: 600 MG 1-1-1
     Route: 048
  12. ONDANSETRON [Concomitant]
     Active Substance: ONDANSETRON
     Indication: Lung adenocarcinoma
     Dosage: 8 MG ON D1 EVERY 21 DAYS
     Route: 041
     Dates: start: 20211220, end: 20220221
  13. QUETIAPINE [Concomitant]
     Active Substance: QUETIAPINE
     Indication: Mixed anxiety and depressive disorder
     Dosage: QUETIAPINE LP 300 MG 0-0-1
     Route: 048

REACTIONS (1)
  - Erysipelas [Recovering/Resolving]

NARRATIVE: CASE EVENT DATE: 20220201
